FAERS Safety Report 13126428 (Version 1)
Quarter: 2017Q1

REPORT INFORMATION
  Report Type: Report from Study
  Country: None (occurrence: GB)
  Receive Date: 20170118
  Receipt Date: 20170118
  Transmission Date: 20170428
  Serious: Yes (Hospitalization)
  Sender: FDA-Public Use
  Company Number: GB-ABBVIE-17P-167-1839121-00

PATIENT
  Age: 61 Year
  Sex: Female
  Weight: 61 kg

DRUGS (5)
  1. METFORMIN [Concomitant]
     Active Substance: METFORMIN HYDROCHLORIDE
     Indication: PRODUCT USED FOR UNKNOWN INDICATION
     Dates: start: 20110807
  2. HUMIRA [Suspect]
     Active Substance: ADALIMUMAB
     Indication: PSORIASIS
     Route: 065
     Dates: start: 20150224
  3. LISINOPRIL. [Concomitant]
     Active Substance: LISINOPRIL
     Indication: PRODUCT USED FOR UNKNOWN INDICATION
     Dates: start: 20060127
  4. THIAMINE HYDROCHLORIDE. [Concomitant]
     Active Substance: THIAMINE HYDROCHLORIDE
     Indication: PRODUCT USED FOR UNKNOWN INDICATION
     Dates: start: 20141215
  5. LIQUID PARAFFIN AND MAGNESIUM [Concomitant]
     Indication: PRODUCT USED FOR UNKNOWN INDICATION
     Dates: start: 20141215

REACTIONS (8)
  - Gastroenteritis [Unknown]
  - Abnormal behaviour [Unknown]
  - Colitis [Unknown]
  - Essential hypertension [Unknown]
  - Acute kidney injury [Unknown]
  - Type 2 diabetes mellitus [Unknown]
  - Alcoholic liver disease [Unknown]
  - Mental disorder [Unknown]

NARRATIVE: CASE EVENT DATE: 20150616
